FAERS Safety Report 25264335 (Version 4)
Quarter: 2025Q4

REPORT INFORMATION
  Report Type: Report from Study
  Country: CA (occurrence: CA)
  Receive Date: 20250502
  Receipt Date: 20251107
  Transmission Date: 20260118
  Serious: Yes (Death, Other)
  Sender: HLS THERAPEUTICS
  Company Number: CA-HLS-202501087

PATIENT
  Age: 62 Year
  Sex: Male
  Weight: 74 kg

DRUGS (2)
  1. CLOZARIL [Suspect]
     Active Substance: CLOZAPINE
     Indication: Product used for unknown indication
     Route: 048
     Dates: start: 20040511
  2. CLOZARIL [Suspect]
     Active Substance: CLOZAPINE
     Indication: Product used for unknown indication
     Route: 065
     Dates: start: 2008

REACTIONS (12)
  - Aortic arteriosclerosis [Unknown]
  - Chronic obstructive pulmonary disease [Unknown]
  - COVID-19 [Unknown]
  - Hepatic steatosis [Unknown]
  - Intellectual disability [Recovering/Resolving]
  - Electrocardiogram T wave abnormal [Unknown]
  - Pericardial effusion [Unknown]
  - Pleural effusion [Unknown]
  - Pneumonia [Unknown]
  - Emphysema [Unknown]
  - Schizoaffective disorder [Recovering/Resolving]
  - Dyspnoea [Fatal]

NARRATIVE: CASE EVENT DATE: 20080101
